FAERS Safety Report 5601848-8 (Version None)
Quarter: 2008Q1

REPORT INFORMATION
  Report Type: 
  Country: None (occurrence: None)
  Receive Date: 20080124
  Receipt Date: 20080117
  Transmission Date: 20080703
  Serious: Yes (Other)
  Sender: FDA-Public Use
  Company Number: US-PFIZER INC-2007102690

PATIENT
  Sex: Female
  Weight: 23.6 kg

DRUGS (3)
  1. ZYRTEC [Suspect]
     Indication: POSTNASAL DRIP
     Route: 048
     Dates: start: 20070911, end: 20071015
  2. ZYRTEC [Suspect]
     Indication: HYPERSENSITIVITY
  3. ZYRTEC [Suspect]
     Indication: RHINITIS

REACTIONS (6)
  - FEELING ABNORMAL [None]
  - HALLUCINATION, AUDITORY [None]
  - HALLUCINATION, VISUAL [None]
  - POSTNASAL DRIP [None]
  - SCHIZOPHRENIA [None]
  - UNEVALUABLE EVENT [None]
